FAERS Safety Report 21365950 (Version 1)
Quarter: 2022Q3

REPORT INFORMATION
  Report Type: Spontaneous
  Country: DE (occurrence: DE)
  Receive Date: 20220922
  Receipt Date: 20220922
  Transmission Date: 20221027
  Serious: Yes (Hospitalization)
  Sender: FDA-Public Use
  Company Number: DE-NOVARTISPH-NVSC2022DE208917

PATIENT
  Age: 81 Year
  Sex: Male
  Weight: 73 kg

DRUGS (15)
  1. ROFLUMILAST [Suspect]
     Active Substance: ROFLUMILAST
     Indication: Product used for unknown indication
     Dosage: UNK (UNBEKANNT, TABLETTEN)
     Route: 048
  2. ASPIRIN [Suspect]
     Active Substance: ASPIRIN
     Dosage: 100 MG, QD (100 MG, 0-1-0-0, TABLETTEN)
     Route: 048
  3. DIMETHICONE [Concomitant]
     Active Substance: DIMETHICONE
     Indication: Product used for unknown indication
     Dosage: UNK UNK, TID (64 MG/ML, 2-2-2-0, SAFT)
     Route: 048
  4. MORPHINE [Concomitant]
     Active Substance: MORPHINE
     Indication: Product used for unknown indication
     Dosage: UNK (20 MG/ML, BEI BEDARF, TROPFEN)
     Route: 048
  5. ACLIDINIUM BROMIDE [Concomitant]
     Active Substance: ACLIDINIUM BROMIDE
     Indication: Product used for unknown indication
     Dosage: UNK, BID (~400|12 ?G, 1-0-1-0, KAPSELN))
  6. POLYETHYLENE GLYCOLS [Concomitant]
     Active Substance: POLYETHYLENE GLYCOLS
     Indication: Product used for unknown indication
     Dosage: UNK (1-1-0-0, PULVER ZUR HERSTELLUNG EINER L?SUNG ZUM EINNEHMEN))
     Route: 048
  7. RAMIPRIL [Concomitant]
     Active Substance: RAMIPRIL
     Indication: Product used for unknown indication
     Dosage: 5 MG, QD ((5 MG, 1-0-0-0, TABLETTEN)
     Route: 048
  8. LORAZEPAM [Concomitant]
     Active Substance: LORAZEPAM
     Indication: Product used for unknown indication
     Dosage: 1 MG ((1 MG, BEI BEDARF, SAFT)
     Route: 048
  9. CAPROS [Concomitant]
     Indication: Product used for unknown indication
     Dosage: 30 MG, BID (30 MG, 1-0-1-0, RETARD-KAPSELN)
     Route: 048
  10. PANTOPRAZOLE [Concomitant]
     Active Substance: PANTOPRAZOLE
     Indication: Product used for unknown indication
     Dosage: 40 MG, QD (40 MG, 1-0-0-0, TABLETTEN)
     Route: 048
  11. FERROGLYCINE SULFATE [Concomitant]
     Active Substance: FERROGLYCINE SULFATE
     Indication: Product used for unknown indication
     Dosage: 50 MG, 2-0-0-0, KAPSELN
     Route: 048
  12. DUTASTERIDE [Concomitant]
     Active Substance: DUTASTERIDE
     Indication: Product used for unknown indication
     Dosage: UNK, QD (0.5|0.4 MG, 1-0-0-0, KAPSELN))
     Route: 048
  13. TORSEMIDE [Concomitant]
     Active Substance: TORSEMIDE
     Indication: Product used for unknown indication
     Dosage: 5 MG, QD (5 MG, 1-0-0-0, TABLETTEN)
     Route: 048
  14. LACTULOSE [Concomitant]
     Active Substance: LACTULOSE
     Indication: Product used for unknown indication
     Dosage: UNK, BID (3.335 G/5ML, 1-1-0-0, SIRUP))
     Route: 048
  15. BUDESONIDE [Concomitant]
     Active Substance: BUDESONIDE
     Indication: Product used for unknown indication
     Dosage: 0.2 MG, QD (0.2 MG, 1-0-1-0, KAPSELN)

REACTIONS (5)
  - Muscular weakness [Unknown]
  - Anaemia [Unknown]
  - Genital haemorrhage [Unknown]
  - Diarrhoea [Unknown]
  - Haematochezia [Unknown]
